FAERS Safety Report 7276386-X (Version None)
Quarter: 2011Q1

REPORT INFORMATION
  Report Type: 
  Country: None (occurrence: None)
  Receive Date: 20110204
  Receipt Date: 20110128
  Transmission Date: 20110831
  Serious: Yes (Other)
  Sender: FDA-Public Use
  Company Number: US-JNJCH-2011002390

PATIENT
  Age: 59 Year
  Sex: Female
  Weight: 90.7 kg

DRUGS (3)
  1. NEOSPORIN LIP HEALTH DAILY HYDRATION THERAPY [Suspect]
     Indication: LIP DRY
     Dosage: TEXT:SIX TIMES DAILY
     Route: 061
     Dates: start: 20101201, end: 20110124
  2. NEOSPORIN LIP HEALTH OVERNIGHT RENEWAL THERAPY [Suspect]
     Indication: LIP DRY
     Dosage: TEXT:ONCE DAILY
     Route: 061
     Dates: start: 20101201, end: 20110124
  3. ALL OTHER THERAPEUTIC PRODUCTS [Concomitant]
     Indication: PRODUCT USED FOR UNKNOWN INDICATION
     Dosage: TEXT:UNKNOWN
     Route: 065

REACTIONS (2)
  - CHEILITIS [None]
  - APPLICATION SITE BURN [None]
